FAERS Safety Report 21528292 (Version 9)
Quarter: 2023Q2

REPORT INFORMATION
  Report Type: Report from Study
  Country: US (occurrence: US)
  Receive Date: 20221031
  Receipt Date: 20230411
  Transmission Date: 20230722
  Serious: Yes (Other)
  Sender: FDA-Public Use
  Company Number: US-DSJP-DSU-2022-139152AA

PATIENT
  Sex: Male
  Weight: 60.78 kg

DRUGS (4)
  1. PEXIDARTINIB [Suspect]
     Active Substance: PEXIDARTINIB
     Indication: Giant cell tumour of tendon sheath
     Dosage: 400 MG, BID
     Route: 048
     Dates: start: 20221018, end: 20221114
  2. PEXIDARTINIB [Suspect]
     Active Substance: PEXIDARTINIB
     Indication: Synovitis
     Dosage: 200 MG, QD
     Route: 048
     Dates: start: 20221120
  3. PEXIDARTINIB [Suspect]
     Active Substance: PEXIDARTINIB
     Dosage: 400 MG, BID
     Route: 048
     Dates: start: 20221120
  4. PEXIDARTINIB [Suspect]
     Active Substance: PEXIDARTINIB
     Dosage: 200 MG EVERY MORNING 400 MG EVERY EVENING
     Route: 048
     Dates: start: 20221018

REACTIONS (11)
  - Alanine aminotransferase increased [Not Recovered/Not Resolved]
  - Blood bilirubin abnormal [Unknown]
  - Pruritus [Not Recovered/Not Resolved]
  - Nausea [Not Recovered/Not Resolved]
  - Laboratory test abnormal [Unknown]
  - Blood test abnormal [Unknown]
  - Aspartate aminotransferase increased [Not Recovered/Not Resolved]
  - Liver function test increased [Recovering/Resolving]
  - Hypertransaminasaemia [Unknown]
  - Hair colour changes [Not Recovered/Not Resolved]
  - Product dose omission in error [Recovered/Resolved]

NARRATIVE: CASE EVENT DATE: 20220101
